FAERS Safety Report 9642132 (Version 1)
Quarter: 2013Q4

REPORT INFORMATION
  Report Type: Spontaneous
  Country: GB (occurrence: GB)
  Receive Date: 20131023
  Receipt Date: 20131023
  Transmission Date: 20140711
  Serious: Yes (Death)
  Sender: FDA-Public Use
  Company Number: GB-TEVA-438026ISR

PATIENT
  Sex: Female
  Weight: 70 kg

DRUGS (6)
  1. LIGNOCAINE [Suspect]
     Indication: PRODUCT USED FOR UNKNOWN INDICATION
  2. AERRANE [Suspect]
     Indication: COLECTOMY
     Route: 065
     Dates: start: 20121122
  3. BUPIVACAINE HYDROCHLORIDE [Suspect]
     Indication: PRODUCT USED FOR UNKNOWN INDICATION
  4. KETAMINE [Suspect]
     Indication: PRODUCT USED FOR UNKNOWN INDICATION
  5. ALFENTANIL [Suspect]
     Indication: PRODUCT USED FOR UNKNOWN INDICATION
  6. LAUDANOSINE [Suspect]

REACTIONS (2)
  - Acute hepatic failure [Fatal]
  - Toxicity to various agents [Fatal]
